FAERS Safety Report 10841576 (Version 2)
Quarter: 2015Q1

REPORT INFORMATION
  Report Type: Report from Study
  Country: US (occurrence: US)
  Receive Date: 20150220
  Receipt Date: 20150223
  Transmission Date: 20150721
  Serious: Yes (Hospitalization)
  Sender: FDA-Public Use
  Company Number: US-BIOGENIDEC-2015BI017424

PATIENT
  Age: 63 Year
  Sex: Female
  Weight: 77 kg

DRUGS (17)
  1. TECFIDERA [Suspect]
     Active Substance: DIMETHYL FUMARATE
     Indication: MULTIPLE SCLEROSIS
     Route: 048
     Dates: start: 20130709, end: 20141224
  2. AMPYRA [Concomitant]
     Active Substance: DALFAMPRIDINE
     Indication: GAIT DISTURBANCE
     Route: 048
     Dates: start: 20130528
  3. BENICAR [Concomitant]
     Active Substance: OLMESARTAN MEDOXOMIL
     Dates: start: 20130523
  4. TRAMADOL [Concomitant]
     Active Substance: TRAMADOL
  5. VITAMIN B COMPLEX [Concomitant]
     Active Substance: CYANOCOBALAMIN\DEXPANTHENOL\NIACINAMIDE\PYRIDOXINE HYDROCHLORIDE\RIBOFLAVIN 5^-PHOSPHATE SODIUM\THIAMINE HYDROCHLORIDE\VITAMIN B COMPLEX
  6. AMBIEN [Concomitant]
     Active Substance: ZOLPIDEM TARTRATE
  7. OCUVITE [Concomitant]
     Active Substance: VITAMINS
  8. AMPYRA [Concomitant]
     Active Substance: DALFAMPRIDINE
     Indication: GAIT DISTURBANCE
     Route: 048
     Dates: start: 20131021
  9. BACLOFEN. [Concomitant]
     Active Substance: BACLOFEN
     Dates: start: 20140630
  10. VAGIFEM [Concomitant]
     Active Substance: ESTRADIOL
  11. KRILL OMEGA RED OIL [Concomitant]
  12. VITAMIN D [Concomitant]
     Active Substance: CHOLECALCIFEROL
  13. HYDROCHLOROTHIAZIDE. [Concomitant]
     Active Substance: HYDROCHLOROTHIAZIDE
  14. SYNTHROID [Concomitant]
     Active Substance: LEVOTHYROXINE SODIUM
     Dates: start: 20130523
  15. CRANBERRY. [Concomitant]
     Active Substance: CRANBERRY
  16. FLONASE [Concomitant]
     Active Substance: FLUTICASONE PROPIONATE
  17. CULTURELLE [Concomitant]
     Active Substance: LACTOBACILLUS RHAMNOSUS

REACTIONS (5)
  - Urinary tract infection [Recovered/Resolved]
  - Hip fracture [Recovered/Resolved]
  - Lymphocyte count decreased [Recovered/Resolved]
  - Balance disorder [Unknown]
  - Fall [Recovered/Resolved]

NARRATIVE: CASE EVENT DATE: 20141229
